FAERS Safety Report 23557372 (Version 2)
Quarter: 2024Q2

REPORT INFORMATION
  Report Type: Spontaneous
  Country: US (occurrence: US)
  Receive Date: 20240223
  Receipt Date: 20240523
  Transmission Date: 20240715
  Serious: No
  Sender: FDA-Public Use
  Company Number: US-BIOCON BIOLOGICS LIMITED-2023M1118241

PATIENT
  Age: 66 Year
  Sex: Female

DRUGS (2)
  1. SEMGLEE (INSULIN GLARGINE-YFGN) [Suspect]
     Active Substance: INSULIN GLARGINE-YFGN
     Indication: Type 1 diabetes mellitus
     Dosage: UNK, QD (10-20 UNITS/ML)
     Route: 058
  2. DEVICE [Suspect]
     Active Substance: DEVICE
     Indication: Type 1 diabetes mellitus

REACTIONS (2)
  - Product quality issue [Unknown]
  - Device issue [Unknown]
